FAERS Safety Report 8862397 (Version 2)
Quarter: 2012Q4

REPORT INFORMATION
  Report Type: 
  Country: IE (occurrence: IE)
  Receive Date: 20121026
  Receipt Date: 20121212
  Transmission Date: 20130627
  Serious: Yes (Other)
  Sender: FDA-Public Use
  Company Number: IE-PFIZER INC-2012260592

PATIENT

DRUGS (6)
  1. SALAZOPYRIN [Suspect]
     Indication: PSORIATIC ARTHROPATHY
     Dosage: 1 g, 1x/day
     Dates: start: 20120701, end: 20120712
  2. USTEKINUMAB [Suspect]
     Indication: PSORIATIC ARTHROPATHY
     Dosage: 90 mg, every 12 weeks
     Route: 058
     Dates: start: 20120430
  3. USTEKINUMAB [Suspect]
     Indication: PSORIASIS
  4. ARAVA [Concomitant]
     Indication: PSORIATIC ARTHROPATHY
     Dosage: 20 mg, 1x/day
     Route: 048
     Dates: start: 20120401
  5. LIPITOR [Concomitant]
  6. COVERSYL [Concomitant]

REACTIONS (3)
  - Psoriatic arthropathy [Recovered/Resolved]
  - Psoriasis [Recovered/Resolved]
  - Off label use [Not Recovered/Not Resolved]
